FAERS Safety Report 7800600-2 (Version None)
Quarter: 2011Q4

REPORT INFORMATION
  Report Type: 
  Country: None (occurrence: None)
  Receive Date: 20111006
  Receipt Date: 20110926
  Transmission Date: 20120403
  Serious: Yes (Hospitalization)
  Sender: FDA-Public Use
  Company Number: JP-AMGEN-JPNCT2011000847

PATIENT
  Age: 74 Year
  Sex: Male
  Weight: 64 kg

DRUGS (18)
  1. PANITUMUMAB [Suspect]
     Dosage: 4.8 MG/KG, Q2WK
     Route: 041
     Dates: start: 20101213
  2. U PAN [Concomitant]
     Indication: PSYCHOSOMATIC DISEASE
     Dosage: UNK
     Route: 048
  3. CARVEDILOL [Concomitant]
     Dosage: UNK
     Route: 048
  4. BETAMETHASONE [Concomitant]
     Dosage: UNK
     Route: 048
  5. RAMELTEON [Concomitant]
     Dosage: UNK
     Route: 048
  6. CORTICOSTEROIDS [Concomitant]
     Indication: PROPHYLAXIS
     Dosage: UNK
     Route: 065
  7. IRINOTECAN HCL [Suspect]
     Route: 041
     Dates: start: 20101004
  8. FLUOROURACIL [Suspect]
     Indication: COLORECTAL CANCER
     Route: 040
     Dates: start: 20100830
  9. PANITUMUMAB [Suspect]
     Indication: COLORECTAL CANCER
     Dosage: 6 MG/KG, Q2WK
     Route: 041
     Dates: start: 20100830, end: 20100830
  10. DEXAMETHASONE SODIUM PHOSPHATE [Concomitant]
     Dosage: UNK
     Route: 042
  11. NIKORANMART [Concomitant]
     Dosage: UNK
     Route: 048
  12. ASPIRIN [Concomitant]
     Dosage: UNK
     Route: 048
  13. PANITUMUMAB [Suspect]
     Dosage: 6 MG/KG, Q2WK
     Route: 041
     Dates: start: 20101004, end: 20101129
  14. FLUOROURACIL [Suspect]
     Route: 041
     Dates: start: 20100830
  15. LEVOLEUCOVORIN CALCIUM [Suspect]
     Indication: COLORECTAL CANCER
     Route: 041
     Dates: start: 20100830
  16. ALOXI [Concomitant]
     Dosage: UNK
     Route: 042
  17. IRINOTECAN HCL [Suspect]
     Indication: COLORECTAL CANCER
     Route: 041
     Dates: start: 20100830, end: 20101003
  18. MUCOSTA [Concomitant]
     Indication: GASTRITIS
     Dosage: UNK
     Route: 048

REACTIONS (6)
  - DERMATITIS ACNEIFORM [None]
  - DERMATITIS [None]
  - STOMATITIS [None]
  - NEUTROPENIA [None]
  - CHEILITIS [None]
  - HYPOCALCAEMIA [None]
